FAERS Safety Report 22191671 (Version 1)
Quarter: 2023Q2

REPORT INFORMATION
  Report Type: Spontaneous
  Country: KR (occurrence: KR)
  Receive Date: 20230410
  Receipt Date: 20230410
  Transmission Date: 20230721
  Serious: Yes (Other)
  Sender: FDA-Public Use
  Company Number: KR-UCBSA-2023010992

PATIENT
  Age: 29 Year
  Sex: Female

DRUGS (3)
  1. KEPPRA [Suspect]
     Active Substance: LEVETIRACETAM
     Indication: Rash
     Dosage: 250 MILLIGRAM
     Dates: start: 20211102, end: 20211107
  2. KEPPRA [Suspect]
     Active Substance: LEVETIRACETAM
     Indication: Angioedema
  3. KEPPRA [Suspect]
     Active Substance: LEVETIRACETAM
     Indication: Off label use

REACTIONS (3)
  - Liver function test increased [Recovering/Resolving]
  - Rash [Recovering/Resolving]
  - Off label use [Recovering/Resolving]

NARRATIVE: CASE EVENT DATE: 20211105
